FAERS Safety Report 5032094-7 (Version None)
Quarter: 2006Q2

REPORT INFORMATION
  Report Type: 
  Country: None (occurrence: None)
  Receive Date: 20060619
  Receipt Date: 20060607
  Transmission Date: 20061013
  Serious: Yes (Hospitalization)
  Sender: FDA-Public Use
  Company Number: US-2006-006391

PATIENT
  Age: 76 Year
  Sex: Male
  Weight: 68 kg

DRUGS (47)
  1. CAMPATH [Suspect]
     Indication: CHRONIC LYMPHOCYTIC LEUKAEMIA
     Dosage: SEE IMAGE
     Route: 058
     Dates: start: 20060313, end: 20060317
  2. CAMPATH [Suspect]
     Indication: CHRONIC LYMPHOCYTIC LEUKAEMIA
     Dosage: SEE IMAGE
     Route: 058
     Dates: start: 20060501, end: 20060505
  3. CAMPATH [Suspect]
     Indication: CHRONIC LYMPHOCYTIC LEUKAEMIA
     Dosage: SEE IMAGE
     Route: 058
     Dates: start: 20060601, end: 20060605
  4. FLUDARA [Suspect]
     Indication: CHRONIC LYMPHOCYTIC LEUKAEMIA
     Dosage: SEE IMAGE
     Route: 042
     Dates: start: 20060313, end: 20060317
  5. FLUDARA [Suspect]
     Indication: CHRONIC LYMPHOCYTIC LEUKAEMIA
     Dosage: SEE IMAGE
     Route: 042
     Dates: start: 20060501, end: 20060505
  6. FLUDARA [Suspect]
     Indication: CHRONIC LYMPHOCYTIC LEUKAEMIA
     Dosage: SEE IMAGE
     Route: 042
     Dates: start: 20060601, end: 20060605
  7. BACTRIM [Concomitant]
  8. ALBUTEROL [Concomitant]
  9. PREDNISONE [Concomitant]
  10. ACYCLOVIR [Concomitant]
  11. ALLOPURINOL [Concomitant]
  12. DOCUSATE CALCIUM (DOCUSATE CALCIUM) [Concomitant]
  13. FERROUS SULFATE TAB [Concomitant]
  14. FLUCONAZOLE [Concomitant]
  15. FOLIC ACID [Concomitant]
  16. MULTIVITAMINS (RETINOL, PANTHENOL) [Concomitant]
  17. TERAZOSIN HYDROCHLORIDE [Concomitant]
  18. CIPROFLOXACIN [Concomitant]
  19. IMIPENEM (IMIPENEM) [Concomitant]
  20. OXYCODONE W/PARACETAMOL (OXYCODONE) [Concomitant]
  21. FINASTERIDE [Concomitant]
  22. EPOETIN ALFA (EPOETIN ALFA) [Concomitant]
  23. NEUPOGEN [Concomitant]
  24. FAMCICLOVIR (FAMCICLOVIR) [Concomitant]
  25. ACETAMINOPHEN [Concomitant]
  26. DIPHENHYDRAMINE HCL [Concomitant]
  27. SENNA (SENNA ALEXANDRINA) [Concomitant]
  28. ACETAMINOPHEN [Concomitant]
  29. FUROSEMIDE [Concomitant]
  30. LACTULOSE [Concomitant]
  31. VALACYCLOVIR [Concomitant]
  32. AZTREONAM (AZTREONAM) [Concomitant]
  33. OXYCODONE (OXYCODONE) [Concomitant]
  34. CASPOFUNGIN (CASPOFUNGIN) [Concomitant]
  35. VANCOMYCIN [Concomitant]
  36. FLUCONAZOLE [Concomitant]
  37. AVELOX [Concomitant]
  38. HEPARIN [Concomitant]
  39. IMMUNE GLOBULIN INTRAVENOUS (HUMAN) [Concomitant]
  40. HYDROCORTISONE [Concomitant]
  41. DIPHENHYDRAMINE HCL [Concomitant]
  42. LACTULOSE [Concomitant]
  43. ACETAMINOPHNE W/OXYCODONE (OXYCODONE HYDROCHLORIDE) [Concomitant]
  44. FLUCONAZOLE [Concomitant]
  45. GENTAMICIN [Concomitant]
  46. OXYCODONE (OXYCODONE) [Concomitant]
  47. LACTULOSE [Concomitant]

REACTIONS (9)
  - BLOOD CREATININE INCREASED [None]
  - BLOOD UREA INCREASED [None]
  - CONDITION AGGRAVATED [None]
  - HAEMATOCRIT DECREASED [None]
  - HAEMOGLOBIN DECREASED [None]
  - HYPERKALAEMIA [None]
  - NEUTROPENIA [None]
  - PLATELET COUNT DECREASED [None]
  - WHITE BLOOD CELL COUNT DECREASED [None]
